FAERS Safety Report 5308642-6 (Version None)
Quarter: 2007Q2

REPORT INFORMATION
  Report Type: 
  Country: None (occurrence: None)
  Receive Date: 20070426
  Receipt Date: 20070423
  Transmission Date: 20071010
  Serious: Yes (Hospitalization)
  Sender: FDA-Public Use
  Company Number: FRWYE518323APR07

PATIENT
  Age: 50 Year
  Sex: Male

DRUGS (2)
  1. ADVIL [Suspect]
     Indication: BRONCHITIS
     Route: 048
     Dates: start: 20070129, end: 20070201
  2. LODALES [Concomitant]
     Route: 048

REACTIONS (2)
  - NAUSEA [None]
  - NECK PAIN [None]
